FAERS Safety Report 7810404-2 (Version None)
Quarter: 2011Q4

REPORT INFORMATION
  Report Type: 
  Country: None (occurrence: None)
  Receive Date: 20111012
  Receipt Date: 20110927
  Transmission Date: 20120403
  Serious: Yes (Other)
  Sender: FDA-Public Use
  Company Number: FR-ROCHE-1000431

PATIENT
  Age: 50 Year
  Sex: Female

DRUGS (2)
  1. VEMURAFENIB [Suspect]
     Indication: METASTATIC MALIGNANT MELANOMA
  2. ANTALGICS (UNK INGREDIENTS) [Concomitant]

REACTIONS (2)
  - PARALYSIS FLACCID [None]
  - PARAESTHESIA [None]
